FAERS Safety Report 9915153 (Version 1)
Quarter: 2014Q1

REPORT INFORMATION
  Report Type: Report from Study
  Country: NL (occurrence: NL)
  Receive Date: 20140220
  Receipt Date: 20140220
  Transmission Date: 20141002
  Serious: Yes (Other)
  Sender: FDA-Public Use
  Company Number: NL-ASTRAZENECA-2014SE11142

PATIENT
  Age: 62 Year
  Sex: Male

DRUGS (8)
  1. TICAGRELOR [Suspect]
     Indication: ACUTE CORONARY SYNDROME
     Route: 048
     Dates: start: 20130829
  2. ASA [Suspect]
     Indication: ACUTE CORONARY SYNDROME
     Route: 048
     Dates: start: 20130829
  3. EMCOR [Concomitant]
  4. DIOVAN [Concomitant]
  5. NORVASC [Concomitant]
  6. ZOCOR [Concomitant]
  7. PANTOZOL [Concomitant]
  8. PROMOCARD [Concomitant]

REACTIONS (1)
  - Coronary artery occlusion [Recovered/Resolved]
